FAERS Safety Report 18674886 (Version 12)
Quarter: 2021Q4

REPORT INFORMATION
  Report Type: Report from Study
  Country: US (occurrence: US)
  Receive Date: 20201229
  Receipt Date: 20211028
  Transmission Date: 20220303
  Serious: Yes (Life-Threatening, Other)
  Sender: FDA-Public Use
  Company Number: NVSC2020US337294

PATIENT
  Age: 80 Year
  Sex: Female

DRUGS (1)
  1. ENTRESTO [Suspect]
     Active Substance: SACUBITRIL\VALSARTAN
     Indication: Product used for unknown indication
     Dosage: 50 MG (24/26), BID
     Route: 048
     Dates: start: 2020

REACTIONS (26)
  - Feeling abnormal [Unknown]
  - Mitral valve incompetence [Unknown]
  - Condition aggravated [Unknown]
  - Dyspnoea exertional [Unknown]
  - Heart rate increased [Recovered/Resolved]
  - Fluid retention [Unknown]
  - Peripheral swelling [Recovered/Resolved]
  - Swelling [Unknown]
  - Dyspnoea [Unknown]
  - Malaise [Unknown]
  - Dizziness postural [Unknown]
  - Insomnia [Unknown]
  - Somnolence [Unknown]
  - Fatigue [Unknown]
  - Sleep apnoea syndrome [Unknown]
  - Pain in extremity [Unknown]
  - Gait disturbance [Unknown]
  - Viral infection [Unknown]
  - Hyperhidrosis [Unknown]
  - Chills [Unknown]
  - Tremor [Unknown]
  - Visual impairment [Unknown]
  - Nausea [Unknown]
  - Cough [Unknown]
  - Diarrhoea [Unknown]
  - Productive cough [Unknown]

NARRATIVE: CASE EVENT DATE: 20201211
